FAERS Safety Report 4524112-7 (Version None)
Quarter: 2004Q4

REPORT INFORMATION
  Report Type: 
  Country: None (occurrence: None)
  Receive Date: 20041119
  Receipt Date: 20041007
  Transmission Date: 20050328
  Serious: No
  Sender: FDA-Public Use
  Company Number: 209516

PATIENT
  Age: 68 Year
  Sex: Female

DRUGS (1)
  1. RAPTIVA [Suspect]
     Dosage: SUBCUTANEOUS
     Route: 058

REACTIONS (1)
  - TINNITUS [None]
